FAERS Safety Report 4827890-2 (Version None)
Quarter: 2005Q4

REPORT INFORMATION
  Report Type: 
  Country: None (occurrence: None)
  Receive Date: 20051110
  Receipt Date: 20051104
  Transmission Date: 20060501
  Serious: Yes (Death, Other)
  Sender: FDA-Public Use
  Company Number: USA0511112764

PATIENT
  Age: 76 Year
  Sex: Female

DRUGS (1)
  1. HUMULIN N [Suspect]
     Indication: DIABETES MELLITUS

REACTIONS (2)
  - CARDIAC DISORDER [None]
  - RENAL IMPAIRMENT [None]
